FAERS Safety Report 23866359 (Version 2)
Quarter: 2024Q3

REPORT INFORMATION
  Report Type: Spontaneous
  Country: FR (occurrence: FR)
  Receive Date: 20240517
  Receipt Date: 20240702
  Transmission Date: 20241017
  Serious: Yes (Hospitalization)
  Sender: ACCORD
  Company Number: None

PATIENT
  Age: 65 Year
  Sex: Male
  Weight: 98 kg

DRUGS (14)
  1. BORTEZOMIB [Suspect]
     Active Substance: BORTEZOMIB
     Indication: Plasma cell myeloma
     Dosage: STRENGTH: 2.5 MG/ML, 2.25 MG D1 D4 D8 D11
     Dates: start: 20240115, end: 20240415
  2. LENALIDOMIDE [Suspect]
     Active Substance: LENALIDOMIDE
     Indication: Product used for unknown indication
     Dosage: 25 MG FROM D1 TO D21
     Dates: start: 20240115, end: 20240408
  3. BACTRIM [Concomitant]
     Active Substance: SULFAMETHOXAZOLE\TRIMETHOPRIM
     Dosage: 1 TABLET 3 X PER WEEK
     Dates: start: 20240115, end: 20240321
  4. DEXAMETHASONE [Concomitant]
     Active Substance: DEXAMETHASONE
     Dosage: STRENGTH: 40 MG, 20MG ON D1 D8 D15 AND D22
     Dates: start: 20240115, end: 20240408
  5. ARANESP [Concomitant]
     Active Substance: DARBEPOETIN ALFA
     Dosage: STRENGTH: 100 MCG, 4 INJECTIONS: 14/03/24, 21/03/24, 04/04/24, 12/04/24
     Dates: start: 20240314, end: 20240412
  6. ELIQUIS [Concomitant]
     Active Substance: APIXABAN
     Dosage: STRENGTH: 2.5 MG, 1 TABLET MORNING AND EVENING
     Dates: start: 20240115, end: 20240408
  7. DARATUMUMAB [Concomitant]
     Active Substance: DARATUMUMAB
     Dosage: STRENGTH: 1800 MG, 1800 MG ON D1 D8 D15 AND D22 (WITH PRE-MEDICATION)
     Dates: start: 20240115, end: 20240408
  8. BISOPROLOL [Concomitant]
     Active Substance: BISOPROLOL\BISOPROLOL FUMARATE
  9. AMOXICILLIN [Concomitant]
     Active Substance: AMOXICILLIN
  10. FUROSEMIDE [Concomitant]
     Active Substance: FUROSEMIDE
  11. FOLIC ACID [Concomitant]
     Active Substance: FOLIC ACID
  12. PREDNISONE [Concomitant]
     Active Substance: PREDNISONE
  13. VALACYCLOVIR HYDROCHLORIDE [Concomitant]
     Active Substance: VALACYCLOVIR HYDROCHLORIDE
  14. VIREAD [Concomitant]
     Active Substance: TENOFOVIR DISOPROXIL FUMARATE

REACTIONS (1)
  - Drug reaction with eosinophilia and systemic symptoms [Recovered/Resolved]

NARRATIVE: CASE EVENT DATE: 20240319
